FAERS Safety Report 25878367 (Version 1)
Quarter: 2025Q4

REPORT INFORMATION
  Report Type: Spontaneous
  Country: TH (occurrence: TH)
  Receive Date: 20251003
  Receipt Date: 20251003
  Transmission Date: 20260117
  Serious: Yes (Other)
  Sender: NOVARTIS
  Company Number: TH-002147023-NVSC2025TH147755

PATIENT
  Age: 64 Year
  Sex: Male

DRUGS (48)
  1. SACUBITRIL\VALSARTAN [Suspect]
     Active Substance: SACUBITRIL\VALSARTAN
     Indication: Product used for unknown indication
     Dosage: UNK ((49+51) 1/2X2 PO PC)
     Route: 048
  2. SACUBITRIL\VALSARTAN [Suspect]
     Active Substance: SACUBITRIL\VALSARTAN
     Dosage: 100 MG, QD (1/2X2 PO)
     Route: 048
     Dates: start: 202405
  3. SACUBITRIL\VALSARTAN [Suspect]
     Active Substance: SACUBITRIL\VALSARTAN
     Dosage: 100 MG, QD (1/2X2 PO)
     Route: 048
     Dates: start: 202406
  4. SACUBITRIL\VALSARTAN [Suspect]
     Active Substance: SACUBITRIL\VALSARTAN
     Dosage: 200 MG, QD (1/X2 PO)
     Route: 048
     Dates: start: 202408
  5. SACUBITRIL\VALSARTAN [Suspect]
     Active Substance: SACUBITRIL\VALSARTAN
     Dosage: 300 MG, QD (1.5/X2 PO)
     Route: 048
     Dates: start: 202410
  6. SACUBITRIL\VALSARTAN [Suspect]
     Active Substance: SACUBITRIL\VALSARTAN
     Dosage: 400 MG, QD (2X2 PO)
     Route: 048
     Dates: start: 202412
  7. ASPIRIN [Concomitant]
     Active Substance: ASPIRIN
     Indication: Product used for unknown indication
     Dosage: UNK ((81) 1X1 PO PC)
     Route: 048
  8. ASPIRIN [Concomitant]
     Active Substance: ASPIRIN
     Dosage: UNK ((81) 1X1 PO PC)
     Route: 048
     Dates: start: 202405
  9. ASPIRIN [Concomitant]
     Active Substance: ASPIRIN
     Dosage: UNK ((81) 1X1 PO PC)
     Route: 048
     Dates: start: 202406
  10. ASPIRIN [Concomitant]
     Active Substance: ASPIRIN
     Dosage: UNK ((81) 1X1 PO PC)
     Route: 048
     Dates: start: 202408
  11. ASPIRIN [Concomitant]
     Active Substance: ASPIRIN
     Dosage: UNK ((81) 1X1 PO PC)
     Route: 048
     Dates: start: 202410
  12. ASPIRIN [Concomitant]
     Active Substance: ASPIRIN
     Dosage: UNK ((81) 1X1 PO PC)
     Route: 048
     Dates: start: 202412
  13. ATORVASTATIN [Concomitant]
     Active Substance: ATORVASTATIN
     Indication: Product used for unknown indication
     Dosage: 40 MG, QD ((40) 1X1 PO)
     Route: 048
  14. ATORVASTATIN [Concomitant]
     Active Substance: ATORVASTATIN
     Dosage: 40 MG, QD ((40) 1X1 PO)
     Route: 048
     Dates: start: 202405
  15. ATORVASTATIN [Concomitant]
     Active Substance: ATORVASTATIN
     Dosage: 40 MG, QD ((40) 1X1 PO)
     Route: 048
     Dates: start: 202406
  16. ATORVASTATIN [Concomitant]
     Active Substance: ATORVASTATIN
     Dosage: 80 MG, QD (2X1 PO)
     Route: 048
     Dates: start: 202408
  17. ATORVASTATIN [Concomitant]
     Active Substance: ATORVASTATIN
     Dosage: 80 MG, QD (2X1 PO)
     Route: 048
     Dates: start: 202410
  18. ATORVASTATIN [Concomitant]
     Active Substance: ATORVASTATIN
     Dosage: 80 MG, QD (2X1 PO)
     Route: 048
     Dates: start: 202412
  19. LOSARTAN [Concomitant]
     Active Substance: LOSARTAN
     Indication: Product used for unknown indication
     Dosage: 50 MG, QD ((50) 1/2X2 PO PC)
     Route: 048
  20. LOSARTAN [Concomitant]
     Active Substance: LOSARTAN
     Dosage: 50 MG, QD (1/2X2 PO (50 MG/DAY) )
     Route: 048
     Dates: start: 202405
  21. ALDACTONE [Concomitant]
     Active Substance: SPIRONOLACTONE
     Indication: Product used for unknown indication
     Dosage: UNK ((25) 1X1 PO PC)
     Route: 048
  22. ALDACTONE [Concomitant]
     Active Substance: SPIRONOLACTONE
     Dosage: 25 MG, QD (1X1 PO (25 MG/DAY))
     Route: 048
     Dates: start: 202406
  23. ALDACTONE [Concomitant]
     Active Substance: SPIRONOLACTONE
     Dosage: 37.5 MG, QD (1.5X1 PO)
     Route: 048
     Dates: start: 202408
  24. ALDACTONE [Concomitant]
     Active Substance: SPIRONOLACTONE
     Dosage: 37.5 MG, QD (1.5X1 PO)
     Route: 048
     Dates: start: 202410
  25. ALDACTONE [Concomitant]
     Active Substance: SPIRONOLACTONE
     Dosage: 37.5 MG, QD (1.5X1 PO)
     Route: 048
     Dates: start: 202412
  26. CARVEDILOL [Concomitant]
     Active Substance: CARVEDILOL
     Indication: Product used for unknown indication
     Dosage: UNK ((6.25) 1X2 PO PC)
     Route: 048
  27. CARVEDILOL [Concomitant]
     Active Substance: CARVEDILOL
     Dosage: 6.25 MG, QD (1/2X2 PO)
     Route: 048
     Dates: start: 202405
  28. CARVEDILOL [Concomitant]
     Active Substance: CARVEDILOL
     Dosage: 12.5 MG, QD (1X2 PO)
     Route: 048
     Dates: start: 202406
  29. CARVEDILOL [Concomitant]
     Active Substance: CARVEDILOL
     Dosage: 18.75 MG, QD (1.5X2 PO)
     Route: 048
     Dates: start: 202408
  30. CARVEDILOL [Concomitant]
     Active Substance: CARVEDILOL
     Dosage: 50 MG, QD (1/2X2 PO) (25)
     Route: 048
     Dates: start: 202410
  31. CARVEDILOL [Concomitant]
     Active Substance: CARVEDILOL
     Dosage: 50 MG, QD (1X2 PO) (25)
     Route: 048
     Dates: start: 202412
  32. EMPAGLIFLOZIN [Concomitant]
     Active Substance: EMPAGLIFLOZIN
     Indication: Product used for unknown indication
     Dosage: UNK ((25) 1/2X1 PO PC)
     Route: 048
  33. EMPAGLIFLOZIN [Concomitant]
     Active Substance: EMPAGLIFLOZIN
     Dosage: 12.5 MG, QD (1/2X1 PO)
     Route: 048
     Dates: start: 202406
  34. EMPAGLIFLOZIN [Concomitant]
     Active Substance: EMPAGLIFLOZIN
     Dosage: 12.5 MG, QD (1/2X1 PO)
     Route: 048
     Dates: start: 202408
  35. EMPAGLIFLOZIN [Concomitant]
     Active Substance: EMPAGLIFLOZIN
     Dosage: 12.5 MG, QD (1/2X1 PO)
     Route: 048
     Dates: start: 202410
  36. EMPAGLIFLOZIN [Concomitant]
     Active Substance: EMPAGLIFLOZIN
     Dosage: 12.5 MG, QD (1/2X1 PO)
     Route: 048
     Dates: start: 202412
  37. FUROSEMIDE [Concomitant]
     Active Substance: FUROSEMIDE
     Indication: Product used for unknown indication
     Dosage: 40 MG, QD  (40) 1X1 PO PC)
     Route: 048
  38. FUROSEMIDE [Concomitant]
     Active Substance: FUROSEMIDE
     Dosage: 80 MG, QD (1-1-0 PO)
     Route: 048
     Dates: start: 202405
  39. FUROSEMIDE [Concomitant]
     Active Substance: FUROSEMIDE
     Dosage: 40 MG, QD (1X1 PO)
     Route: 048
     Dates: start: 202406
  40. FUROSEMIDE [Concomitant]
     Active Substance: FUROSEMIDE
     Dosage: 40 MG, QD (1X1 PO)
     Route: 048
     Dates: start: 202408
  41. FUROSEMIDE [Concomitant]
     Active Substance: FUROSEMIDE
     Dosage: 20 MG, QD (1/2X1 PO)
     Route: 048
     Dates: start: 202410
  42. FUROSEMIDE [Concomitant]
     Active Substance: FUROSEMIDE
     Dosage: 20 MG, QD (1/2X1 PO)
     Route: 048
     Dates: start: 202412
  43. METFORMIN [Concomitant]
     Active Substance: METFORMIN HYDROCHLORIDE
     Indication: Product used for unknown indication
     Dosage: 1000 MG, QD ( (500) 1X2 PO PC)
     Route: 048
  44. METFORMIN [Concomitant]
     Active Substance: METFORMIN HYDROCHLORIDE
     Dosage: 1000 MG, QD (1X2 PO)
     Route: 048
     Dates: start: 202405
  45. METFORMIN [Concomitant]
     Active Substance: METFORMIN HYDROCHLORIDE
     Dosage: 1000 MG, QD (1X2 PO)
     Route: 048
     Dates: start: 202406
  46. METFORMIN [Concomitant]
     Active Substance: METFORMIN HYDROCHLORIDE
     Dosage: 1000 MG, QD (1X2 PO)
     Route: 048
     Dates: start: 202408
  47. METFORMIN [Concomitant]
     Active Substance: METFORMIN HYDROCHLORIDE
     Dosage: 1000 MG, QD (1X2 PO)
     Route: 048
     Dates: start: 202410
  48. METFORMIN [Concomitant]
     Active Substance: METFORMIN HYDROCHLORIDE
     Dosage: 1000 MG, QD (1X2 PO)
     Route: 048
     Dates: start: 202412

REACTIONS (7)
  - Ischaemic cardiomyopathy [Unknown]
  - Coronary artery disease [Unknown]
  - Wrong technique in product usage process [Unknown]
  - Blood glucose increased [Recovering/Resolving]
  - Blood creatinine decreased [Unknown]
  - Blood bicarbonate decreased [Unknown]
  - Low density lipoprotein increased [Unknown]
